FAERS Safety Report 8208860-3 (Version None)
Quarter: 2012Q1

REPORT INFORMATION
  Report Type: 
  Country: None (occurrence: None)
  Receive Date: 20120314
  Receipt Date: 20120312
  Transmission Date: 20120608
  Serious: Yes (Hospitalization, Other)
  Sender: FDA-Public Use
  Company Number: US-MERCK-1107USA01064

PATIENT
  Age: 69 Year
  Sex: Female
  Weight: 75 kg

DRUGS (4)
  1. VITAMINS (UNSPECIFIED) [Concomitant]
     Route: 065
     Dates: start: 19950101
  2. ALENDRONATE SODIUM [Suspect]
     Indication: OSTEOPOROSIS
     Route: 048
     Dates: start: 20080301, end: 20110101
  3. ZOCOR [Concomitant]
     Indication: BLOOD CHOLESTEROL INCREASED
     Route: 048
     Dates: start: 19880101
  4. FOSAMAX [Suspect]
     Indication: OSTEOPOROSIS
     Route: 048
     Dates: start: 20010601, end: 20080601

REACTIONS (18)
  - BUNION [None]
  - ROTATOR CUFF SYNDROME [None]
  - OCCULT BLOOD POSITIVE [None]
  - BURSA DISORDER [None]
  - ARTHROPATHY [None]
  - DEEP VEIN THROMBOSIS [None]
  - MENISCUS LESION [None]
  - BREAST DISORDER [None]
  - ANAEMIA POSTOPERATIVE [None]
  - OSTEOARTHRITIS [None]
  - SYNOVIAL CYST [None]
  - VARICOSE VEIN [None]
  - THROMBOSIS [None]
  - FEMUR FRACTURE [None]
  - MUSCLE CONTRACTURE [None]
  - OEDEMA PERIPHERAL [None]
  - DERMAL CYST [None]
  - OSTEOPENIA [None]
